FAERS Safety Report 8053786-1 (Version None)
Quarter: 2012Q1

REPORT INFORMATION
  Report Type: 
  Country: None (occurrence: None)
  Receive Date: 20120118
  Receipt Date: 20120109
  Transmission Date: 20120608
  Serious: Yes (Death, Life-Threatening, Hospitalization, Other)
  Sender: FDA-Public Use
  Company Number: US-ACTELION-A-US2011-58421

PATIENT

DRUGS (3)
  1. TREPROSTINIL [Concomitant]
  2. TRACLEER [Suspect]
     Indication: PULMONARY ARTERIAL HYPERTENSION
     Dosage: 125 MG, BID
     Route: 048
     Dates: start: 20070321, end: 20120101
  3. REVATIO [Concomitant]

REACTIONS (3)
  - HAEMOPTYSIS [None]
  - THERAPEUTIC EMBOLISATION [None]
  - PULMONARY ARTERIAL HYPERTENSION [None]
